FAERS Safety Report 23323331 (Version 1)
Quarter: 2023Q4

REPORT INFORMATION
  Report Type: Spontaneous
  Country: US (occurrence: None)
  Receive Date: 20231220
  Receipt Date: 20231220
  Transmission Date: 20240109
  Serious: No
  Sender: FDA-Public Use
  Company Number: US-ROCHE-3343505

PATIENT
  Age: 78 Year
  Sex: Female

DRUGS (15)
  1. RITUXAN [Suspect]
     Active Substance: RITUXIMAB
     Indication: Back pain
     Dosage: 500 MG 50 ML , DAY 1 AND 15 OF EVERY 6 MONTHS
     Route: 041
  2. CEPHALEXIN [Concomitant]
     Active Substance: CEPHALEXIN
  3. AMLODIPINE BESYLATE [Concomitant]
     Active Substance: AMLODIPINE BESYLATE
  4. CRESTOR [Concomitant]
     Active Substance: ROSUVASTATIN CALCIUM
  5. PREMARIN [Concomitant]
     Active Substance: ESTROGENS, CONJUGATED
  6. GABAPENTIN [Concomitant]
     Active Substance: GABAPENTIN
  7. LIDOCAINE HYDROCHLORIDE [Concomitant]
     Active Substance: DEXTROSE MONOHYDRATE\EPINEPHRINE\EPINEPHRINE BITARTRATE\LIDOCAINE\LIDOCAINE HYDROCHLORIDE\LIDOCAINE
  8. JELLY BEANS (UNK INGREDIENTS) [Concomitant]
  9. CLONAZEPAM [Concomitant]
     Active Substance: CLONAZEPAM
  10. HYDROCODONE [Concomitant]
     Active Substance: HYDROCODONE
  11. MELOXICAM [Concomitant]
     Active Substance: MELOXICAM
  12. OMEPRAZOLE [Concomitant]
     Active Substance: OMEPRAZOLE
  13. ATORVASTATIN CALCIUM [Concomitant]
     Active Substance: ATORVASTATIN CALCIUM
  14. PREDNISONE [Concomitant]
     Active Substance: PREDNISONE
  15. TAMIFLU [Concomitant]
     Active Substance: OSELTAMIVIR PHOSPHATE

REACTIONS (2)
  - Off label use [Unknown]
  - No adverse event [Unknown]

NARRATIVE: CASE EVENT DATE: 20230205
